FAERS Safety Report 10572185 (Version 2)
Quarter: 2014Q4

REPORT INFORMATION
  Report Type: Spontaneous
  Country: US (occurrence: US)
  Receive Date: 20141108
  Receipt Date: 20141204
  Transmission Date: 20150529
  Serious: No
  Sender: FDA-Public Use
  Company Number: US-009507513-1411USA001704

PATIENT
  Sex: Male
  Weight: 93.88 kg

DRUGS (1)
  1. GRASTEK [Suspect]
     Active Substance: PHLEUM PRATENSE POLLEN
     Dosage: TOTAL DAILY DOSE: ONE, ONCE DAILY
     Route: 060

REACTIONS (1)
  - Swollen tongue [Recovered/Resolved]
